FAERS Safety Report 6953675-7 (Version None)
Quarter: 2010Q3

REPORT INFORMATION
  Report Type: 
  Country: None (occurrence: None)
  Receive Date: 20100829
  Receipt Date: 20100622
  Transmission Date: 20110219
  Serious: No
  Sender: FDA-Public Use
  Company Number: US-ABBOTT-10P-163-0652936-00

PATIENT
  Sex: Male
  Weight: 96.248 kg

DRUGS (4)
  1. NIASPAN [Suspect]
     Indication: DYSLIPIDAEMIA
     Dosage: AT BEDTIME
     Dates: start: 20100608
  2. PAXIL [Concomitant]
     Indication: PRODUCT USED FOR UNKNOWN INDICATION
     Route: 048
  3. ASPIRIN [Concomitant]
     Indication: PRODUCT USED FOR UNKNOWN INDICATION
     Route: 048
  4. IBUPROFEN [Concomitant]
     Indication: PRODUCT USED FOR UNKNOWN INDICATION
     Route: 048

REACTIONS (4)
  - ERYTHEMA [None]
  - FEELING HOT [None]
  - FLUSHING [None]
  - SINUSITIS [None]
